FAERS Safety Report 5682292-4 (Version None)
Quarter: 2008Q1

REPORT INFORMATION
  Report Type: 
  Country: None (occurrence: None)
  Receive Date: 20080327
  Receipt Date: 20080318
  Transmission Date: 20080703
  Serious: Yes (Other)
  Sender: FDA-Public Use
  Company Number: PHHY2008BR03445

PATIENT
  Age: 12 Year
  Sex: Male

DRUGS (3)
  1. RITALIN [Suspect]
     Indication: DISTURBANCE IN ATTENTION
     Dosage: 20 MG, QD
     Route: 048
     Dates: start: 20080312, end: 20080316
  2. RITALIN [Suspect]
     Dosage: UNK, UNK
     Route: 048
     Dates: start: 20080317
  3. FLUOXETINA [Concomitant]

REACTIONS (5)
  - CHEST PAIN [None]
  - DRUG INEFFECTIVE [None]
  - DYSPNOEA [None]
  - NAUSEA [None]
  - VOMITING [None]
